FAERS Safety Report 8065342-X (Version None)
Quarter: 2011Q4

REPORT INFORMATION
  Report Type: 
  Country: None (occurrence: None)
  Receive Date: 20111221
  Receipt Date: 20110629
  Transmission Date: 20120403
  Serious: Yes (Other)
  Sender: FDA-Public Use
  Company Number: PHHY2011US57971

PATIENT
  Age: 69 Year
  Sex: Female
  Weight: 50.9 kg

DRUGS (8)
  1. PRAZAC (PRAZOSIN HYDROCHLORIDE) [Concomitant]
  2. METHANOL (METHANOL) [Concomitant]
  3. SYNTHROID [Concomitant]
  4. KLOR-CON [Concomitant]
  5. ACTONEL [Concomitant]
  6. NITROGLYCERIN [Concomitant]
  7. EXJADE [Suspect]
     Indication: MYELODYSPLASTIC SYNDROME
     Dosage: 500 MG, QD, ORAL
     Route: 048
     Dates: start: 20110228, end: 20110509
  8. VITAMINS (NO INGREDIENTS/SUBSTANCES) [Concomitant]

REACTIONS (1)
  - NEOPLASM MALIGNANT [None]
